FAERS Safety Report 8133630-4 (Version None)
Quarter: 2012Q1

REPORT INFORMATION
  Report Type: 
  Country: None (occurrence: None)
  Receive Date: 20120213
  Receipt Date: 20120129
  Transmission Date: 20120608
  Serious: Yes (Hospitalization, Other)
  Sender: FDA-Public Use
  Company Number: BR-ROCHE-800011

PATIENT
  Sex: Male

DRUGS (15)
  1. VITAMIN D [Concomitant]
  2. DIMETHICONE [Concomitant]
     Route: 065
  3. MABTHERA [Suspect]
     Indication: PRODUCT USED FOR UNKNOWN INDICATION
     Dosage: DOSE, FORM FREQUENCY NOT REPORTED.
     Route: 042
     Dates: start: 20110701, end: 20110715
  4. PRATIPRAZOL [Concomitant]
  5. THALIDOMIDE [Concomitant]
  6. DOMPERIDONE [Concomitant]
  7. MORPHINE SULFATE [Concomitant]
  8. INSULIN HUMAN [Concomitant]
  9. MELPHALAN HYDROCHLORIDE [Suspect]
     Indication: PRODUCT USED FOR UNKNOWN INDICATION
  10. AMOXICILLIN AND CLAVULANATE POTASSIUM [Concomitant]
  11. NPH INSULIN [Concomitant]
  12. PREDNISONE TAB [Concomitant]
  13. ACETAMINOPHEN [Concomitant]
  14. CALCIUM CARBONATE [Concomitant]
  15. LEVOTHYROXINE SODIUM [Concomitant]

REACTIONS (13)
  - DYSPHAGIA [None]
  - NAUSEA [None]
  - ABASIA [None]
  - PYREXIA [None]
  - APPETITE DISORDER [None]
  - PNEUMONIA [None]
  - RESPIRATORY TRACT INFECTION [None]
  - INFLUENZA [None]
  - HAEMORRHAGE SUBCUTANEOUS [None]
  - SYNCOPE [None]
  - NEUTROPENIA [None]
  - DRUG INEFFECTIVE [None]
  - PAIN [None]
